FAERS Safety Report 4990884-0 (Version None)
Quarter: 2006Q2

REPORT INFORMATION
  Report Type: 
  Country: None (occurrence: None)
  Receive Date: 20060428
  Receipt Date: 20060413
  Transmission Date: 20061013
  Serious: Yes (Other)
  Sender: FDA-Public Use
  Company Number: 200611090BCC

PATIENT
  Age: 48 Year
  Sex: Male
  Weight: 97.0698 kg

DRUGS (4)
  1. NAPROXEN [Suspect]
     Dosage: 500 MG BID ORAL
     Route: 048
     Dates: start: 20030506
  2. LISINOPRIL W/HYDROCHLOROTHIAZIDE [Concomitant]
  3. NEXIUM [Concomitant]
  4. ZOLOFT [Concomitant]

REACTIONS (13)
  - ABSCESS [None]
  - BLOOD PRESSURE INCREASED [None]
  - DIVERTICULAR FISTULA [None]
  - GASTRIC DISORDER [None]
  - HAEMATOMA [None]
  - INFECTION [None]
  - LARGE INTESTINE PERFORATION [None]
  - NEPHROLITHIASIS [None]
  - NIGHT SWEATS [None]
  - RECTAL HAEMORRHAGE [None]
  - RENAL CYST [None]
  - SCAR [None]
  - STRESS AT WORK [None]
